FAERS Safety Report 6177375-9 (Version None)
Quarter: 2009Q2

REPORT INFORMATION
  Report Type: 
  Country: None (occurrence: None)
  Receive Date: 20090430
  Receipt Date: 20090430
  Transmission Date: 20091009
  Serious: Yes (Life-Threatening, Hospitalization, Other)
  Sender: FDA-Public Use
  Company Number: None

PATIENT
  Age: 49 Year
  Sex: Female
  Weight: 67.1324 kg

DRUGS (1)
  1. ACYCLOVIR [Suspect]
     Indication: BURNING SENSATION
     Dosage: 800MG 1 TABLET FOR 5 DAYS 4 TIMES DAILY PO
     Route: 048
     Dates: start: 20090418, end: 20090424

REACTIONS (7)
  - AGITATION [None]
  - ANXIETY [None]
  - FATIGUE [None]
  - MALAISE [None]
  - MOOD ALTERED [None]
  - NERVOUSNESS [None]
  - RESTLESSNESS [None]
